FAERS Safety Report 6721299-2 (Version None)
Quarter: 2010Q2

REPORT INFORMATION
  Report Type: 
  Country: None (occurrence: None)
  Receive Date: 20100510
  Receipt Date: 20100503
  Transmission Date: 20101027
  Serious: Yes (Other)
  Sender: FDA-Public Use
  Company Number: 2010SP025190

PATIENT
  Age: 69 Year
  Sex: Male

DRUGS (1)
  1. PEGINTRON (PEGINTERFERON ALFA-2B / 01543001/ ) [Suspect]
     Indication: LIVER DISORDER
     Dates: start: 20100416, end: 20100416

REACTIONS (2)
  - ABNORMAL BEHAVIOUR [None]
  - DEMENTIA ALZHEIMER'S TYPE [None]
